FAERS Safety Report 15093463 (Version 1)
Quarter: 2018Q2

REPORT INFORMATION
  Report Type: Spontaneous
  Country: US (occurrence: US)
  Receive Date: 20180629
  Receipt Date: 20180629
  Transmission Date: 20180711
  Serious: Yes (Other)
  Sender: FDA-Public Use
  Company Number: US-LPDUSPRD-20180926

PATIENT
  Age: 36 Year
  Sex: Female

DRUGS (1)
  1. INJECTAFER [Suspect]
     Active Substance: FERRIC CARBOXYMALTOSE
     Dosage: 750MG/100ML NSS
     Route: 042
     Dates: start: 20180517, end: 20180517

REACTIONS (3)
  - Pruritus [Unknown]
  - Sensation of foreign body [Unknown]
  - Throat irritation [Unknown]

NARRATIVE: CASE EVENT DATE: 20180517
